FAERS Safety Report 9076260 (Version 1)
Quarter: 2013Q1

REPORT INFORMATION
  Report Type: Report from Study
  Country: US (occurrence: US)
  Receive Date: 20130129
  Receipt Date: 20130129
  Transmission Date: 20140127
  Serious: No
  Sender: FDA-Public Use
  Company Number: US-ABBOTT-12P-163-0922487-00

PATIENT
  Age: 19 Year
  Sex: Female

DRUGS (3)
  1. HUMIRA 40 MG/0.8 ML PEN [Suspect]
     Indication: PSORIASIS
     Dosage: LOADING DOSE
     Dates: start: 20120322, end: 20120322
  2. HUMIRA 40 MG/0.8 ML PEN [Suspect]
     Dates: start: 20120329
  3. BIRTH CONTROL [Concomitant]
     Indication: CONTRACEPTION
     Route: 048

REACTIONS (7)
  - Pyrexia [Recovering/Resolving]
  - Injection site erythema [Recovering/Resolving]
  - Injection site bruising [Recovering/Resolving]
  - Injection site urticaria [Recovering/Resolving]
  - Injection site pruritus [Recovering/Resolving]
  - Injection site warmth [Recovering/Resolving]
  - Injection site discolouration [Recovering/Resolving]
